FAERS Safety Report 7582885-3 (Version None)
Quarter: 2011Q2

REPORT INFORMATION
  Report Type: 
  Country: None (occurrence: None)
  Receive Date: 20110527
  Receipt Date: 20101021
  Transmission Date: 20111010
  Serious: Yes (Hospitalization, Other)
  Sender: FDA-Public Use
  Company Number: US201008000755

PATIENT
  Age: 79 Year
  Sex: Male

DRUGS (13)
  1. ZOCOR [Concomitant]
  2. GLYBURIDE [Concomitant]
  3. METFORMIN HCL [Concomitant]
  4. BYETTA [Suspect]
     Indication: TYPE 2 DIABETES MELLITUS
     Dosage: 5 UG, 2/D, SUBCUTANEOUS, 10 UG, 2/D, SUBCUTANEOUS
     Route: 058
     Dates: end: 20100317
  5. ZYRTEC [Concomitant]
  6. IMDUR [Concomitant]
  7. MULTIVITAMIN [Concomitant]
  8. ALBUTEROL [Concomitant]
  9. ASPIRIN [Concomitant]
  10. SOTALOL (SOTALOL) [Concomitant]
  11. PRINIVIL (LISINOPRIL DIHYDRATE) [Concomitant]
  12. HYDROCHLOROTHIAZIDE [Concomitant]
  13. NITROSTAT [Concomitant]

REACTIONS (1)
  - PANCREATITIS ACUTE [None]
